FAERS Safety Report 21129093 (Version 1)
Quarter: 2022Q3

REPORT INFORMATION
  Report Type: Spontaneous
  Country: US (occurrence: US)
  Receive Date: 20220725
  Receipt Date: 20220725
  Transmission Date: 20221026
  Serious: Yes (Other)
  Sender: FDA-Public Use
  Company Number: US-PFIZER INC-PV202200029227

PATIENT
  Age: 79 Year
  Sex: Male

DRUGS (2)
  1. XELJANZ [Interacting]
     Active Substance: TOFACITINIB CITRATE
     Dosage: 5 MG
  2. MESALAMINE [Interacting]
     Active Substance: MESALAMINE
     Dosage: UNK

REACTIONS (2)
  - Drug interaction [Unknown]
  - Myelosuppression [Unknown]
